FAERS Safety Report 13213727 (Version 1)
Quarter: 2017Q1

REPORT INFORMATION
  Report Type: Spontaneous
  Country: KR (occurrence: KR)
  Receive Date: 20170210
  Receipt Date: 20170210
  Transmission Date: 20170428
  Serious: Yes (Death, Hospitalization, Other)
  Sender: FDA-Public Use
  Company Number: KR-009507513-1702KOR004186

PATIENT
  Age: 80 Year
  Sex: Female
  Weight: 55.9 kg

DRUGS (22)
  1. DEXAMETHASONE YUHAN [Concomitant]
     Dosage: 5 MG, QID
     Route: 042
     Dates: start: 20160816, end: 20160823
  2. NEXIUM I.V. [Concomitant]
     Active Substance: ESOMEPRAZOLE SODIUM
     Indication: PROPHYLAXIS
     Dosage: 40 MG, QD
     Route: 042
     Dates: start: 20160829, end: 20160909
  3. DOXORUBIN [Concomitant]
     Active Substance: DOXORUBICIN
     Indication: DIFFUSE LARGE B-CELL LYMPHOMA
     Dosage: STRENGTH 0.2% 25 ML; 57 MG, ONCE, CYCLE 1
     Route: 042
     Dates: start: 20160823, end: 20160823
  4. DEXAMETHASONE YUHAN [Concomitant]
     Indication: LYMPHOMA
     Dosage: 5 MG, TID
     Route: 042
     Dates: start: 20160823, end: 20160830
  5. OLIMEL [Concomitant]
     Active Substance: AMINO ACIDS\DEXTROSE\SOYBEAN OIL
     Indication: DECREASED APPETITE
     Dosage: 1000 ML, QD
     Route: 042
     Dates: start: 20160829, end: 20160917
  6. QUETAPIN [Concomitant]
     Indication: INSOMNIA
     Dosage: 25 MG, QD
     Route: 048
     Dates: start: 20160823, end: 20160830
  7. DUPHALAC [Concomitant]
     Active Substance: LACTULOSE
     Indication: CONSTIPATION
     Dosage: 15 ML, BID
     Dates: start: 20160818, end: 20160828
  8. MYPOL [Concomitant]
     Indication: BACK PAIN
     Dosage: 2 CAPSULE, TID
     Route: 048
     Dates: start: 20160805, end: 20160830
  9. ENDOXAN [Concomitant]
     Active Substance: CYCLOPHOSPHAMIDE
     Indication: DIFFUSE LARGE B-CELL LYMPHOMA
     Dosage: 860 MG, ONCE, CYCLE 1
     Route: 042
     Dates: start: 20160823, end: 20160823
  10. PELUBI [Concomitant]
     Indication: BACK PAIN
     Dosage: 30 MG, TID
     Route: 048
     Dates: start: 20160803, end: 20160828
  11. EMEND (FOSAPREPITANT DIMEGLUMINE) [Suspect]
     Active Substance: FOSAPREPITANT DIMEGLUMINE
     Indication: PROPHYLAXIS OF NAUSEA AND VOMITING
     Dosage: 150 MG, ONCE
     Route: 042
     Dates: start: 20160823, end: 20160823
  12. VINCRAN V [Concomitant]
     Indication: DIFFUSE LARGE B-CELL LYMPHOMA
     Dosage: 1.6 MG, ONCE, CYCLE 1
     Route: 042
     Dates: start: 20160823, end: 20160823
  13. DEXAMETHASONE YUHAN [Concomitant]
     Dosage: 5 MG, TID
     Route: 042
     Dates: start: 20160824, end: 20160830
  14. ALOXI [Concomitant]
     Active Substance: PALONOSETRON HYDROCHLORIDE
     Indication: PROPHYLAXIS OF NAUSEA AND VOMITING
     Dosage: 5 ML, ONCE
     Route: 042
     Dates: start: 20160823, end: 20160823
  15. AROBEST [Concomitant]
     Indication: MUSCLE RELAXANT THERAPY
     Dosage: 20 MG, TID
     Route: 048
     Dates: start: 20160803, end: 20160828
  16. MATRIFEN [Concomitant]
     Active Substance: FENTANYL
     Indication: BONE PAIN
     Dosage: 12 MCG/H 4.2 CM3; PATCH;
     Dates: start: 20160808, end: 20160906
  17. DONG A GASTER [Concomitant]
     Indication: DYSPEPSIA
     Dosage: 20 MG, BID
     Route: 042
     Dates: start: 20160815, end: 20160824
  18. NEURONTIN [Concomitant]
     Active Substance: GABAPENTIN
     Indication: NEUROPATHY PERIPHERAL
     Dosage: 300 MG, TID
     Route: 048
     Dates: start: 20160819, end: 20160830
  19. MABTHERA [Concomitant]
     Active Substance: RITUXIMAB
     Indication: DIFFUSE LARGE B-CELL LYMPHOMA
     Dosage: 573 MG, ONCE, CYCLE 1
     Route: 042
     Dates: start: 20160823, end: 20160823
  20. DEXAMETHASONE YUHAN [Concomitant]
     Indication: PROPHYLAXIS OF NAUSEA AND VOMITING
     Dosage: STRENGTH 5 MG/ML; 5 MG, QID
     Route: 042
     Dates: start: 20160816, end: 20160824
  21. LANSTON LFDT [Concomitant]
     Active Substance: LANSOPRAZOLE
     Indication: PROPHYLAXIS
     Dosage: 15 MG, ONCE
     Route: 048
     Dates: start: 20160803, end: 20160828
  22. MOTILITONE [Concomitant]
     Active Substance: HERBALS
     Indication: DYSPEPSIA
     Dosage: 30 MG, TID
     Route: 048
     Dates: start: 20160812, end: 20160917

REACTIONS (7)
  - Small intestinal haemorrhage [Recovered/Resolved]
  - Ileus [Recovered/Resolved]
  - Pulmonary oedema [Recovered/Resolved]
  - Pyrexia [Not Recovered/Not Resolved]
  - Shock [Not Recovered/Not Resolved]
  - Liver function test increased [Recovered/Resolved]
  - Pneumonia [Fatal]

NARRATIVE: CASE EVENT DATE: 20160830
